FAERS Safety Report 8484327 (Version 5)
Quarter: 2014Q1

REPORT INFORMATION
  Report Type: Report from Study
  Country: US (occurrence: US)
  Receive Date: 20120329
  Receipt Date: 20140124
  Transmission Date: 20141002
  Serious: Yes (Hospitalization)
  Sender: FDA-Public Use
  Company Number: US-ROCHE-1053507

PATIENT
  Age: 56 Year
  Sex: Female
  Weight: 64 kg

DRUGS (8)
  1. PEG-INTERFERON ALFA 2A [Suspect]
     Indication: CHRONIC HEPATITIS C
     Dosage: DOSAGE FORM:SPI
     Route: 058
     Dates: start: 20111101
  2. RIBAVIRIN [Suspect]
     Indication: CHRONIC HEPATITIS C
     Route: 048
     Dates: start: 20111101
  3. TRAZODONE [Concomitant]
     Indication: DEPRESSION
     Route: 048
     Dates: start: 200901
  4. FLUOXETINE [Concomitant]
     Indication: DEPRESSION
     Route: 048
     Dates: start: 200901
  5. AMLODIPINE [Concomitant]
     Indication: HYPERTENSION
     Route: 048
  6. LISINOPRIL/HCTZ [Concomitant]
     Indication: HYPERTENSION
     Dosage: DAILY-20-25 MG
     Route: 048
  7. COMPAZINE [Concomitant]
     Route: 065
  8. BI 201335 [Suspect]
     Indication: CHRONIC HEPATITIS C
     Dosage: DOSAGE FORM: KAW; FREQUENCY-QD
     Route: 048
     Dates: start: 20111101, end: 20120117

REACTIONS (1)
  - Presyncope [Recovered/Resolved]
